FAERS Safety Report 23619840 (Version 2)
Quarter: 2024Q1

REPORT INFORMATION
  Report Type: Other
  Country: US (occurrence: None)
  Receive Date: 20240312
  Receipt Date: 20240314
  Transmission Date: 20240410
  Serious: Yes (Hospitalization, Other)
  Sender: FDA-Public Use
  Company Number: US-ROCHE-3521338

PATIENT
  Age: 56 Year
  Sex: Female

DRUGS (1)
  1. OCREVUS [Suspect]
     Active Substance: OCRELIZUMAB
     Indication: Multiple sclerosis
     Dosage: ON 18/AUG/2023, SHE RECEIVED LAST DOSE OF OCRELIZUMAB.
     Route: 065
     Dates: start: 2018

REACTIONS (2)
  - Pneumonia [Not Recovered/Not Resolved]
  - COVID-19 [Unknown]

NARRATIVE: CASE EVENT DATE: 20200101
